FAERS Safety Report 17369156 (Version 1)
Quarter: 2020Q1

REPORT INFORMATION
  Report Type: Spontaneous
  Country: US (occurrence: US)
  Receive Date: 20190906
  Receipt Date: 20190906
  Transmission Date: 20200409
  Serious: Yes (Hospitalization)
  Sender: FDA-Public Use
  Company Number: None

PATIENT
  Age: 18 Year
  Sex: Male

DRUGS (1)
  1. THC VAPE [Suspect]
     Active Substance: .DELTA.8-TETRAHYDROCANNABINOL\DEVICE\HERBALS
     Route: 055

REACTIONS (7)
  - Pneumomediastinum [None]
  - Pneumothorax [None]
  - Dyspnoea [None]
  - Dyspnoea exertional [None]
  - Hyperhidrosis [None]
  - Chest pain [None]
  - Subcutaneous emphysema [None]

NARRATIVE: CASE EVENT DATE: 20190827
